FAERS Safety Report 5029618-2 (Version None)
Quarter: 2006Q2

REPORT INFORMATION
  Report Type: 
  Country: None (occurrence: None)
  Receive Date: 20060620
  Receipt Date: 20060317
  Transmission Date: 20061013
  Serious: Yes (Hospitalization)
  Sender: FDA-Public Use
  Company Number: US-KINGPHARMUSA00001-K200600356

PATIENT
  Age: 59 Year
  Sex: Male

DRUGS (5)
  1. ALTACE [Suspect]
     Indication: DIABETIC NEPHROPATHY
     Dosage: 10 MG, QD
     Route: 048
     Dates: start: 20050901
  2. ALTACE [Suspect]
     Dosage: UNK, QD
     Route: 048
     Dates: end: 20060119
  3. SAROTEX [Concomitant]
     Indication: DEPRESSION
     Dosage: 75 MG, UNK
     Route: 048
  4. NOVOMIX [Concomitant]
     Indication: DIABETES MELLITUS INSULIN-DEPENDENT
     Dosage: UNK, UNK
     Route: 058
  5. SOBRIL [Concomitant]
     Indication: SLEEP DISORDER
     Dosage: 15 MG, UNK
     Route: 048

REACTIONS (6)
  - ABDOMINAL PAIN UPPER [None]
  - ALANINE AMINOTRANSFERASE INCREASED [None]
  - BLOOD ALKALINE PHOSPHATASE INCREASED [None]
  - COLITIS [None]
  - GAMMA-GLUTAMYLTRANSFERASE INCREASED [None]
  - PYREXIA [None]
